FAERS Safety Report 23242353 (Version 5)
Quarter: 2024Q1

REPORT INFORMATION
  Report Type: Spontaneous
  Country: BT (occurrence: BT)
  Receive Date: 20231129
  Receipt Date: 20240222
  Transmission Date: 20240410
  Serious: Yes (Other)
  Sender: FDA-Public Use
  Company Number: BT-MLMSERVICE-20231108-4648467-1

PATIENT
  Age: 44 Year
  Sex: Female

DRUGS (5)
  1. TRIAMCINOLONE ACETONIDE [Suspect]
     Active Substance: TRIAMCINOLONE ACETONIDE
     Indication: Oral submucosal fibrosis
     Dosage: 1 ML, QW, INTRALESIONAL
     Route: 026
  2. PLACENTREX [PLACENTA EXTRACT] [Concomitant]
     Indication: Oral submucosal fibrosis
     Dosage: 2 ML, ADMINISTERED TWICE A WEEK
     Route: 065
  3. VITAMIN B COMPLEX [Concomitant]
     Active Substance: CYANOCOBALAMIN\DEXPANTHENOL\NIACINAMIDE\PYRIDOXINE HYDROCHLORIDE\RIBOFLAVIN 5^-PHOSPHATE SODIUM\THIA
     Indication: Oral submucosal fibrosis
     Dosage: 1 TABLET, TWICE DAILY
     Route: 065
  4. ASCORBIC ACID [Concomitant]
     Active Substance: ASCORBIC ACID
     Indication: Oral submucosal fibrosis
     Dosage: 250 MG, BID
     Route: 048
  5. ASCORBIC ACID [Concomitant]
     Active Substance: ASCORBIC ACID
     Indication: Vitamin supplementation

REACTIONS (5)
  - Pseudo Cushing^s syndrome [Recovered/Resolved]
  - Cushingoid [Recovered/Resolved]
  - Lipohypertrophy [Recovered/Resolved]
  - Oedema peripheral [Recovered/Resolved]
  - Hair growth abnormal [Recovered/Resolved]
